FAERS Safety Report 13137497 (Version 7)
Quarter: 2018Q4

REPORT INFORMATION
  Report Type: Spontaneous
  Country: US (occurrence: US)
  Receive Date: 20170123
  Receipt Date: 20181220
  Transmission Date: 20190204
  Serious: Yes (Other)
  Sender: FDA-Public Use
  Company Number: US-ASTRAZENECA-2017SE03313

PATIENT
  Age: 18304 Day
  Sex: Female
  Weight: 95.3 kg

DRUGS (60)
  1. NEXIUM [Suspect]
     Active Substance: ESOMEPRAZOLE MAGNESIUM
     Indication: GASTROOESOPHAGEAL REFLUX DISEASE
     Dosage: GENERIC
     Route: 065
     Dates: start: 20090413
  2. NEXIUM [Suspect]
     Active Substance: ESOMEPRAZOLE MAGNESIUM
     Indication: GASTROOESOPHAGEAL REFLUX DISEASE
     Route: 048
     Dates: start: 201210, end: 201303
  3. PRILOSEC [Suspect]
     Active Substance: OMEPRAZOLE MAGNESIUM
     Indication: GASTROOESOPHAGEAL REFLUX DISEASE
     Route: 048
     Dates: start: 2001, end: 2009
  4. LISINOPRIL. [Concomitant]
     Active Substance: LISINOPRIL
  5. COZAAR [Concomitant]
     Active Substance: LOSARTAN POTASSIUM
     Route: 065
  6. PROPOFOL. [Concomitant]
     Active Substance: PROPOFOL
     Route: 065
  7. TRAMADOL. [Concomitant]
     Active Substance: TRAMADOL
     Dosage: 25.0MG UNKNOWN
     Dates: start: 20110608
  8. AMITRIPTYLINE [Concomitant]
     Active Substance: AMITRIPTYLINE
     Dosage: 10.0MG UNKNOWN
     Dates: start: 20111202
  9. DELESTROGEN [Concomitant]
     Active Substance: ESTRADIOL VALERATE
  10. NIASPAN [Concomitant]
     Active Substance: NIACIN
  11. PROTONIX [Concomitant]
     Active Substance: PANTOPRAZOLE SODIUM
  12. PROZAC [Concomitant]
     Active Substance: FLUOXETINE HYDROCHLORIDE
  13. NEXIUM [Suspect]
     Active Substance: ESOMEPRAZOLE MAGNESIUM
     Indication: GASTROOESOPHAGEAL REFLUX DISEASE
     Route: 048
     Dates: start: 2009
  14. ESTRACE [Concomitant]
     Active Substance: ESTRADIOL
     Dosage: 1.0MG UNKNOWN
     Route: 048
     Dates: start: 20110701
  15. PEPCID [Concomitant]
     Active Substance: FAMOTIDINE
  16. TUMS [Concomitant]
     Active Substance: CALCIUM CARBONATE
  17. MELOXICAM. [Concomitant]
     Active Substance: MELOXICAM
  18. HUMALOG [Concomitant]
     Active Substance: INSULIN LISPRO
     Dosage: 100 UNIT/ML
     Route: 065
  19. JARDIANCE [Concomitant]
     Active Substance: EMPAGLIFLOZIN
     Dosage: 10.0MG UNKNOWN
  20. CITALOPRAM [Concomitant]
     Active Substance: CITALOPRAM HYDROBROMIDE
  21. NEXIUM [Suspect]
     Active Substance: ESOMEPRAZOLE MAGNESIUM
     Indication: GASTROOESOPHAGEAL REFLUX DISEASE
     Route: 048
     Dates: start: 20101122
  22. PRILOSEC [Suspect]
     Active Substance: OMEPRAZOLE MAGNESIUM
     Indication: GASTROOESOPHAGEAL REFLUX DISEASE
     Dosage: GENERIC
     Route: 065
     Dates: start: 20111101
  23. AMOXICILLIN. [Concomitant]
     Active Substance: AMOXICILLIN
  24. ROBAXIN [Concomitant]
     Active Substance: METHOCARBAMOL
     Route: 065
  25. DICYCLOMINE [Concomitant]
     Active Substance: DICYCLOMINE HYDROCHLORIDE
     Dosage: 20.0MG UNKNOWN
     Dates: start: 20110919
  26. FUROSEMIDE. [Concomitant]
     Active Substance: FUROSEMIDE
     Dosage: 80.0MG UNKNOWN
  27. NEXIUM [Suspect]
     Active Substance: ESOMEPRAZOLE MAGNESIUM
     Indication: GASTROOESOPHAGEAL REFLUX DISEASE
     Dosage: GENERIC
     Route: 065
     Dates: start: 20090801
  28. DEXILANT [Suspect]
     Active Substance: DEXLANSOPRAZOLE
     Indication: GASTROOESOPHAGEAL REFLUX DISEASE
     Route: 065
     Dates: start: 2011, end: 2013
  29. DEXILANT [Suspect]
     Active Substance: DEXLANSOPRAZOLE
     Indication: GASTROOESOPHAGEAL REFLUX DISEASE
     Route: 065
  30. ZANTAC [Concomitant]
     Active Substance: RANITIDINE HYDROCHLORIDE
     Route: 048
  31. BENTYL [Concomitant]
     Active Substance: DICYCLOMINE HYDROCHLORIDE
     Route: 048
  32. ALIGN [Concomitant]
     Active Substance: BIFIDOBACTERIUM LONGUM SUBSP. INFANTIS
     Route: 048
  33. FLUOXETINE [Concomitant]
     Active Substance: FLUOXETINE HYDROCHLORIDE
  34. CIMETIDINE [Concomitant]
     Active Substance: CIMETIDINE
  35. TOVIAZ [Concomitant]
     Active Substance: FESOTERODINE FUMARATE
  36. CYMBALTA [Concomitant]
     Active Substance: DULOXETINE HYDROCHLORIDE
  37. NEXIUM 24HR [Suspect]
     Active Substance: ESOMEPRAZOLE MAGNESIUM
     Indication: GASTROOESOPHAGEAL REFLUX DISEASE
     Route: 048
     Dates: start: 2017
  38. METRONIDAZOLE. [Concomitant]
     Active Substance: METRONIDAZOLE
     Dosage: 500.0MG UNKNOWN
     Dates: start: 20110919
  39. KEFLEX [Concomitant]
     Active Substance: CEPHALEXIN
  40. PRILOSEC [Suspect]
     Active Substance: OMEPRAZOLE MAGNESIUM
     Indication: GASTROOESOPHAGEAL REFLUX DISEASE
     Route: 048
     Dates: start: 2001
  41. PRILOSEC [Suspect]
     Active Substance: OMEPRAZOLE MAGNESIUM
     Indication: GASTROOESOPHAGEAL REFLUX DISEASE
     Dosage: GENERIC
     Route: 065
     Dates: start: 20090413
  42. LOVASTATIN. [Concomitant]
     Active Substance: LOVASTATIN
     Dosage: HALF TABLET
     Route: 065
  43. FLAGYL [Concomitant]
     Active Substance: METRONIDAZOLE\METRONIDAZOLE HYDROCHLORIDE
  44. HYDROCHLOROTHIAZIDE. [Concomitant]
     Active Substance: HYDROCHLOROTHIAZIDE
     Dosage: 25.0MG UNKNOWN
     Dates: start: 20090716
  45. CYCLOBENZAPRINE. [Concomitant]
     Active Substance: CYCLOBENZAPRINE
     Dosage: 10.0MG UNKNOWN
     Dates: start: 20090801
  46. CARAFATE [Concomitant]
     Active Substance: SUCRALFATE
     Route: 065
  47. LYRICA [Concomitant]
     Active Substance: PREGABALIN
  48. NEURONTIN [Concomitant]
     Active Substance: GABAPENTIN
     Dosage: 30.0MG UNKNOWN
     Dates: start: 20090318
  49. TAGAMET HB [Concomitant]
     Active Substance: CIMETIDINE
  50. CIPROFLOXACIN. [Concomitant]
     Active Substance: CIPROFLOXACIN
  51. GLUCOPHAGE [Concomitant]
     Active Substance: METFORMIN HYDROCHLORIDE
     Route: 065
     Dates: start: 20090617
  52. ESTRADIOL. [Concomitant]
     Active Substance: ESTRADIOL
     Dosage: 1.0MG UNKNOWN
     Dates: start: 20090917
  53. DILTIAZEM. [Concomitant]
     Active Substance: DILTIAZEM
     Dosage: 120.0MG UNKNOWN
  54. SPIRONOLACTONE. [Concomitant]
     Active Substance: SPIRONOLACTONE
     Dosage: 50.0MG UNKNOWN
  55. PRAVASTATIN. [Concomitant]
     Active Substance: PRAVASTATIN
  56. DEXILANT [Suspect]
     Active Substance: DEXLANSOPRAZOLE
     Indication: GASTROOESOPHAGEAL REFLUX DISEASE
     Route: 065
     Dates: start: 20110902
  57. RANITIDINE. [Concomitant]
     Active Substance: RANITIDINE
     Dosage: 150.0MG UNKNOWN
     Route: 048
     Dates: start: 20100727
  58. NEURONTIN [Concomitant]
     Active Substance: GABAPENTIN
     Dosage: 600.0MG UNKNOWN
     Route: 048
     Dates: start: 20100816
  59. PROMETHAZINE [Concomitant]
     Active Substance: PROMETHAZINE\PROMETHAZINE HYDROCHLORIDE
     Dosage: 12.5MG UNKNOWN
     Route: 048
     Dates: start: 20110607
  60. AZITHROMYCIN ANHYDROUS. [Concomitant]
     Active Substance: AZITHROMYCIN ANHYDROUS

REACTIONS (5)
  - Renal disorder [Unknown]
  - End stage renal disease [Unknown]
  - Chronic kidney disease [Not Recovered/Not Resolved]
  - Renal failure [Unknown]
  - Renal injury [Not Recovered/Not Resolved]

NARRATIVE: CASE EVENT DATE: 20100410
